FAERS Safety Report 26137633 (Version 2)
Quarter: 2025Q4

REPORT INFORMATION
  Report Type: Report from Study
  Country: CO (occurrence: CO)
  Receive Date: 20251209
  Receipt Date: 20251214
  Transmission Date: 20260117
  Serious: Yes (Life-Threatening, Hospitalization, Disabling)
  Sender: ABBVIE
  Company Number: CO-JNJFOC-20251176000

PATIENT
  Age: 69 Year
  Sex: Female
  Weight: 47 kg

DRUGS (1)
  1. IMBRUVICA [Suspect]
     Active Substance: IBRUTINIB
     Indication: Chronic lymphocytic leukaemia
     Route: 048
     Dates: start: 20171101

REACTIONS (7)
  - Loss of consciousness [Unknown]
  - Aortic valve stenosis [Unknown]
  - Paraplegia [Unknown]
  - Thrombosis [Unknown]
  - Poor peripheral circulation [Unknown]
  - Fall [Unknown]
  - Spinal cord haemorrhage [Unknown]

NARRATIVE: CASE EVENT DATE: 20251105
